FAERS Safety Report 5368271-5 (Version None)
Quarter: 2007Q2

REPORT INFORMATION
  Report Type: 
  Country: None (occurrence: None)
  Receive Date: 20070625
  Receipt Date: 20070614
  Transmission Date: 20071010
  Serious: Yes (Hospitalization)
  Sender: FDA-Public Use
  Company Number: HQWYE656218JUN07

PATIENT
  Age: 55 Year
  Sex: Male

DRUGS (9)
  1. ARTANE [Suspect]
     Indication: SCHIZOPHRENIA
     Dosage: UNKNOWN
     Route: 048
  2. AMANTADINE HCL [Concomitant]
     Indication: SCHIZOPHRENIA
     Dosage: UNKNOWN
     Route: 048
  3. CLONAZEPAM [Concomitant]
     Indication: SCHIZOPHRENIA
     Dosage: UNKNOWN
     Route: 048
  4. PHENOBARBITAL TAB [Concomitant]
     Indication: SCHIZOPHRENIA
     Dosage: UNKNOWN
     Route: 048
  5. LEVOMEPROMAZINE MALEATE [Concomitant]
     Indication: SCHIZOPHRENIA
     Dosage: UNKNOWN
     Route: 048
  6. CHLORPROMAZINE HCL [Concomitant]
     Indication: SCHIZOPHRENIA
     Dosage: UNKNOWN
     Route: 048
  7. PROMETHAZINE HCL [Concomitant]
     Indication: SCHIZOPHRENIA
     Dosage: UNKNOWN
     Route: 048
  8. HALOPERIDOL [Concomitant]
     Indication: SCHIZOPHRENIA
     Dosage: UNKNOWN
     Route: 048
  9. CLONIDINE HCL [Concomitant]
     Indication: SCHIZOPHRENIA
     Dosage: UNKNOWN
     Route: 048

REACTIONS (3)
  - NEUROLEPTIC MALIGNANT SYNDROME [None]
  - RENAL FAILURE [None]
  - RHABDOMYOLYSIS [None]
